FAERS Safety Report 6900307-X (Version None)
Quarter: 2010Q3

REPORT INFORMATION
  Report Type: 
  Country: None (occurrence: None)
  Receive Date: 20100803
  Receipt Date: 20100720
  Transmission Date: 20110219
  Serious: Yes (Other)
  Sender: FDA-Public Use
  Company Number: PHHY2010US47654

PATIENT
  Sex: Female

DRUGS (1)
  1. FEMARA [Suspect]
     Dosage: UNK
     Route: 048
     Dates: start: 20100101, end: 20100601

REACTIONS (2)
  - RHINORRHOEA [None]
  - SINUSITIS [None]
